FAERS Safety Report 17888210 (Version 2)
Quarter: 2020Q2

REPORT INFORMATION
  Report Type: Spontaneous
  Country: US (occurrence: US)
  Receive Date: 20200612
  Receipt Date: 20200617
  Transmission Date: 20200714
  Serious: No
  Sender: FDA-Public Use
  Company Number: US-SHIRE-US202018883

PATIENT
  Sex: Female

DRUGS (1)
  1. GATTEX [Suspect]
     Active Substance: TEDUGLUTIDE\WATER
     Indication: GASTROINTESTINAL DISORDER THERAPY
     Dosage: 0.23 (UNIT UNKNOWN), 1X/DAY:QD
     Route: 058
     Dates: start: 20161202

REACTIONS (5)
  - Weight decreased [Not Recovered/Not Resolved]
  - Retching [Unknown]
  - Blood potassium increased [Unknown]
  - Blood creatinine decreased [Not Recovered/Not Resolved]
  - Blood creatinine increased [Unknown]
